FAERS Safety Report 8574024-7 (Version None)
Quarter: 2012Q3

REPORT INFORMATION
  Report Type: 
  Country: None (occurrence: None)
  Receive Date: 20120806
  Receipt Date: 20120724
  Transmission Date: 20120928
  Serious: Yes (Hospitalization, Other)
  Sender: FDA-Public Use
  Company Number: US-ELI_LILLY_AND_COMPANY-US201207007761

PATIENT
  Sex: Female

DRUGS (5)
  1. ZYPREXA ZYDIS [Suspect]
     Dosage: UNK, UNKNOWN
     Dates: start: 20120101
  2. ABILIFY [Concomitant]
     Dosage: 10 MG, EACH MORNING
  3. ZYPREXA RELPREVV [Suspect]
     Indication: SCHIZOAFFECTIVE DISORDER BIPOLAR TYPE
     Dosage: UNK, UNKNOWN
     Dates: start: 20120601
  4. ZYPREXA [Suspect]
     Dosage: UNK, UNKNOWN
  5. ABILIFY [Concomitant]
     Dosage: 10 MG, EACH EVENING

REACTIONS (2)
  - HEPATITIS C [None]
  - HOSPITALISATION [None]
